FAERS Safety Report 4450490-3 (Version None)
Quarter: 2004Q3

REPORT INFORMATION
  Report Type: 
  Country: None (occurrence: None)
  Receive Date: 20040805
  Receipt Date: 20040623
  Transmission Date: 20050211
  Serious: Yes (Disabling)
  Sender: FDA-Public Use
  Company Number: MOBN20040002

PATIENT
  Age: 89 Year
  Sex: Female
  Weight: 56.6996 kg

DRUGS (7)
  1. MOBAN [Suspect]
     Indication: ANXIETY
     Dosage: 15 MG           DAILY          PO
     Route: 048
     Dates: start: 19990101, end: 20020101
  2. MOBAN [Suspect]
     Indication: DEPRESSION
     Dosage: 15 MG           DAILY          PO
     Route: 048
     Dates: start: 19990101, end: 20020101
  3. VALIUM [Suspect]
     Indication: ANXIETY
     Dosage: 10 MG           BID                   PO
     Route: 048
     Dates: start: 19990101, end: 20020101
  4. MOBAN [Suspect]
     Indication: ANXIETY
     Dosage: 10MG              BID                       PO
     Route: 048
     Dates: start: 20040604, end: 20040606
  5. ZYPREXA [Concomitant]
  6. TOPROL-XL [Concomitant]
  7. ASPIRIN [Concomitant]

REACTIONS (2)
  - HALLUCINATION, VISUAL [None]
  - TARDIVE DYSKINESIA [None]
